FAERS Safety Report 18563999 (Version 1)
Quarter: 2020Q4

REPORT INFORMATION
  Report Type: Spontaneous
  Country: US (occurrence: US)
  Receive Date: 20201130
  Receipt Date: 20201130
  Transmission Date: 20210114
  Serious: Yes (Hospitalization)
  Sender: FDA-Public Use
  Company Number: None

PATIENT
  Age: 83 Year
  Sex: Female

DRUGS (13)
  1. CLONIDINE. [Concomitant]
     Active Substance: CLONIDINE
  2. METOPROLOL. [Concomitant]
     Active Substance: METOPROLOL
  3. TELMISARTAN. [Concomitant]
     Active Substance: TELMISARTAN
  4. SUCRALFATE. [Concomitant]
     Active Substance: SUCRALFATE
  5. BACLOFEN. [Concomitant]
     Active Substance: BACLOFEN
  6. HYDROCODONE POWDER [Concomitant]
  7. XARELTO [Concomitant]
     Active Substance: RIVAROXABAN
  8. AMLODIPINE [Concomitant]
     Active Substance: AMLODIPINE BESYLATE
  9. LANTUS [Concomitant]
     Active Substance: INSULIN GLARGINE
  10. BUPROPION. [Concomitant]
     Active Substance: BUPROPION
  11. PANTOPRAZOLE [Concomitant]
     Active Substance: PANTOPRAZOLE
  12. OXYCODONE [Concomitant]
     Active Substance: OXYCODONE
  13. REPATHA [Suspect]
     Active Substance: EVOLOCUMAB
     Indication: HYPERLIPIDAEMIA
     Dosage: ?          OTHER FREQUENCY:EVERY 2 WEEKS;?
     Route: 058
     Dates: start: 20180619

REACTIONS (2)
  - Therapy interrupted [None]
  - Internal haemorrhage [None]
